FAERS Safety Report 18023552 (Version 15)
Quarter: 2022Q1

REPORT INFORMATION
  Report Type: Report from Study
  Country: CA (occurrence: CA)
  Receive Date: 20200714
  Receipt Date: 20220202
  Transmission Date: 20220423
  Serious: Yes (Death, Hospitalization, Disabling, Other)
  Sender: FDA-Public Use
  Company Number: CA-BAUSCH-BL-2020-013639

PATIENT
  Age: 68 Year
  Sex: Male

DRUGS (8)
  1. SILIQ [Suspect]
     Active Substance: BRODALUMAB
     Indication: Psoriasis
     Dosage: STRENGTH: 210 MG/1.5 ML, WEEK 0,1,2
     Route: 058
     Dates: start: 20191220, end: 202001
  2. SILIQ [Suspect]
     Active Substance: BRODALUMAB
     Dosage: STRENGTH: 210MG/1.5 ML
     Route: 058
     Dates: start: 2020, end: 2020
  3. SILIQ [Suspect]
     Active Substance: BRODALUMAB
     Dosage: STRENGTH: 210MG/1.5 ML
     Route: 058
     Dates: start: 2020
  4. SILIQ [Suspect]
     Active Substance: BRODALUMAB
     Dosage: STRENGTH: 210MG/1.5 ML
     Route: 058
  5. SILIQ [Suspect]
     Active Substance: BRODALUMAB
     Dosage: STRENGTH: 210MG/1.5 ML
     Route: 058
     Dates: start: 2021, end: 20210516
  6. SILIQ [Suspect]
     Active Substance: BRODALUMAB
     Dosage: STRENGTH: 210MG/1.5 ML
     Route: 058
     Dates: start: 2021, end: 2021
  7. SILIQ [Suspect]
     Active Substance: BRODALUMAB
     Dosage: STRENGTH: 210MG/1.5 ML
     Route: 058
     Dates: start: 2021, end: 2021
  8. EPEX [Concomitant]
     Indication: Product used for unknown indication

REACTIONS (20)
  - Death [Fatal]
  - Leukaemia [Unknown]
  - Gait inability [Not Recovered/Not Resolved]
  - Haemoglobin decreased [Unknown]
  - Lymphadenopathy [Unknown]
  - Fall [Unknown]
  - Peripheral swelling [Unknown]
  - Pain in extremity [Unknown]
  - Psoriasis [Recovered/Resolved]
  - Disease recurrence [Recovered/Resolved]
  - Dermatitis [Unknown]
  - Pain [Recovered/Resolved]
  - Back pain [Recovered/Resolved]
  - Cellulitis [Not Recovered/Not Resolved]
  - Neutrophil count decreased [Unknown]
  - Arthralgia [Recovered/Resolved]
  - Injection site pain [Recovered/Resolved]
  - Therapeutic product effect incomplete [Unknown]
  - Off label use [Unknown]
  - Product dose omission issue [Unknown]

NARRATIVE: CASE EVENT DATE: 20200101
